FAERS Safety Report 6165494-2 (Version None)
Quarter: 2009Q2

REPORT INFORMATION
  Report Type: 
  Country: None (occurrence: None)
  Receive Date: 20090421
  Receipt Date: 20090421
  Transmission Date: 20091009
  Serious: Yes (Other)
  Sender: FDA-Public Use
  Company Number: None

PATIENT
  Age: 92 Year
  Sex: Male
  Weight: 72.5755 kg

DRUGS (2)
  1. PHENERGAN [Suspect]
     Indication: NAUSEA
     Dates: start: 20090215, end: 20090216
  2. PHENERGAN [Suspect]
     Indication: NAUSEA
     Dates: start: 19890413, end: 20090414

REACTIONS (3)
  - ABNORMAL BEHAVIOUR [None]
  - FREQUENT BOWEL MOVEMENTS [None]
  - INSOMNIA [None]
